FAERS Safety Report 7617457-5 (Version None)
Quarter: 2011Q3

REPORT INFORMATION
  Report Type: 
  Country: None (occurrence: None)
  Receive Date: 20110718
  Receipt Date: 20110712
  Transmission Date: 20111222
  Serious: No
  Sender: FDA-Public Use
  Company Number: US-PFIZER INC-2010160835

PATIENT
  Sex: Female
  Weight: 72.562 kg

DRUGS (14)
  1. SERRAPEPTASE [Concomitant]
     Indication: DYSPEPSIA
     Dosage: 20000 MG, 1X/DAY
     Dates: start: 20090901
  2. CALCIUM W/MAGNESIUM [Concomitant]
     Dosage: UNK
  3. LIOTHYRONINE [Concomitant]
     Indication: THYROID DISORDER
     Dosage: 5 UG, 1X/DAY
  4. ASCORBIC ACID [Concomitant]
     Dosage: 250 MG, UNK
  5. MAGNESIUM [Concomitant]
     Dosage: 250 MG, UNK
  6. PHOSLO [Concomitant]
     Dosage: 667 MG, UNK
  7. VITAMIN D [Concomitant]
     Dosage: 50000 UNT
  8. ESTRADIOL [Concomitant]
     Dosage: UNK
  9. ESTROGENS [Concomitant]
  10. CHROMIUM PICOLINATE [Concomitant]
     Dosage: 200 UG, UNK
  11. LIPOIC ACID [Concomitant]
     Dosage: 100 MG, UNK
  12. GENOTROPIN [Suspect]
     Indication: HYPOPITUITARISM
     Dosage: 0.6 MG, UNK
     Route: 058
     Dates: start: 20100801, end: 20101128
  13. LEVOTHYROXINE [Concomitant]
     Indication: THYROID DISORDER
     Dosage: 88 UG, 1X/DAY
  14. GENOTROPIN [Suspect]
     Dosage: 0.2 MG, 1X/DAY
     Route: 058

REACTIONS (8)
  - CREPITATIONS [None]
  - PALPITATIONS [None]
  - DEPRESSION [None]
  - RASH [None]
  - PAIN IN EXTREMITY [None]
  - POLLAKIURIA [None]
  - ALLERGY TO CHEMICALS [None]
  - ABDOMINAL DISCOMFORT [None]
